FAERS Safety Report 13859734 (Version 1)
Quarter: 2017Q3

REPORT INFORMATION
  Report Type: Spontaneous
  Country: US (occurrence: US)
  Receive Date: 20170811
  Receipt Date: 20170811
  Transmission Date: 20171127
  Serious: Yes (Hospitalization)
  Sender: FDA-Public Use
  Company Number: None

PATIENT
  Age: 52 Year
  Sex: Female

DRUGS (7)
  1. EFFEXOR XR [Concomitant]
     Active Substance: VENLAFAXINE HYDROCHLORIDE
  2. LEVOTHYROXIN [Concomitant]
     Active Substance: LEVOTHYROXINE
  3. OCALIVA [Suspect]
     Active Substance: OBETICHOLIC ACID
     Indication: BILIARY CIRRHOSIS PRIMARY
     Route: 048
     Dates: start: 20170217
  4. FLOVENT [Concomitant]
     Active Substance: FLUTICASONE PROPIONATE
  5. MONTELUKAST [Concomitant]
     Active Substance: MONTELUKAST SODIUM
  6. HYDROCHLOROT [Concomitant]
     Active Substance: HYDROCHLOROTHIAZIDE
  7. PROVENTIL [Concomitant]
     Active Substance: ALBUTEROL

REACTIONS (1)
  - Cholangitis acute [None]
